FAERS Safety Report 8170636-3 (Version None)
Quarter: 2012Q1

REPORT INFORMATION
  Report Type: 
  Country: None (occurrence: None)
  Receive Date: 20120104
  Receipt Date: 20111007
  Transmission Date: 20120608
  Serious: No
  Sender: FDA-Public Use
  Company Number: 2011HGS-002623

PATIENT
  Age: 70 Year
  Sex: Female
  Weight: 54.4316 kg

DRUGS (12)
  1. BENLYSTA [Suspect]
     Indication: SYSTEMIC LUPUS ERYTHEMATOSUS
     Dosage: 1 IN 28 D, INTRAVENOUS DRIP
     Route: 041
     Dates: start: 20110427
  2. NEXIUM [Concomitant]
  3. CALCIUM + D (VITACAL) (CALCIUM, VITAMIN D NOS) [Concomitant]
  4. PAXIL [Concomitant]
  5. VITAMIN TAB [Concomitant]
  6. EXFORGE [Concomitant]
  7. CELLCEPT [Concomitant]
  8. ZETIA [Concomitant]
  9. PREDNISONE TAB [Concomitant]
  10. FLEXERIL [Concomitant]
  11. FISH OIL (FISH OIL) [Concomitant]
  12. FIORICEPT W/CODEINE (FIORICET W/CODEINE) (CODEINE PHOSPHATE, CAFFEINE, [Concomitant]

REACTIONS (5)
  - FATIGUE [None]
  - PAIN IN EXTREMITY [None]
  - ALOPECIA [None]
  - DYSURIA [None]
  - FEELING ABNORMAL [None]
